FAERS Safety Report 10524231 (Version 2)
Quarter: 2014Q4

REPORT INFORMATION
  Report Type: Spontaneous
  Country: JP (occurrence: JP)
  Receive Date: 20141017
  Receipt Date: 20141024
  Transmission Date: 20150528
  Serious: Yes (Other)
  Sender: FDA-Public Use
  Company Number: JP-OTSUKA-JP-2014-18171

PATIENT

DRUGS (3)
  1. SAMSCA [Suspect]
     Active Substance: TOLVAPTAN
     Indication: OEDEMA DUE TO CARDIAC DISEASE
     Dosage: 15 MG MILLIGRAM(S), DAILY DOSE
     Route: 048
     Dates: start: 20140412, end: 20140626
  2. TAKEPRON [Concomitant]
     Active Substance: LANSOPRAZOLE
     Indication: PRODUCT USED FOR UNKNOWN INDICATION
     Dosage: 30 MG MILLIGRAM(S), DAILY DOSE
     Route: 048
     Dates: start: 20140203
  3. LASIX M [Concomitant]
     Active Substance: FUROSEMIDE
     Indication: PRODUCT USED FOR UNKNOWN INDICATION
     Dosage: 20 MG MILLIGRAM(S), DAILY DOSE
     Route: 065
     Dates: start: 20140328

REACTIONS (2)
  - Melaena [Recovered/Resolved]
  - Epistaxis [Recovered/Resolved]

NARRATIVE: CASE EVENT DATE: 20140625
